FAERS Safety Report 4780602-3 (Version None)
Quarter: 2005Q3

REPORT INFORMATION
  Report Type: 
  Country: None (occurrence: None)
  Receive Date: 20050914
  Receipt Date: 20050427
  Transmission Date: 20060218
  Serious: Yes (Hospitalization)
  Sender: FDA-Public Use
  Company Number: 163-20785-05040552

PATIENT
  Age: 63 Year
  Sex: Female
  Weight: 82 kg

DRUGS (31)
  1. THALOMID [Suspect]
     Indication: MULTIPLE MYELOMA
     Dosage: ORAL
     Route: 048
     Dates: start: 20041120
  2. VELCADE [Suspect]
     Indication: MULTIPLE MYELOMA
     Dates: start: 20041120
  3. VELCADE [Suspect]
     Indication: MULTIPLE MYELOMA
     Dates: start: 20050101
  4. DEXAMETHASONE [Suspect]
     Indication: MULTIPLE MYELOMA
     Dates: start: 20041120
  5. DEXAMETHASONE [Suspect]
     Indication: MULTIPLE MYELOMA
     Dates: start: 20050101
  6. CISPLATIN [Suspect]
     Indication: MULTIPLE MYELOMA
     Dates: start: 20041120
  7. ADRIAMYCIN PFS [Suspect]
     Indication: MULTIPLE MYELOMA
     Dates: start: 20041120
  8. ADRIAMYCIN PFS [Suspect]
     Indication: MULTIPLE MYELOMA
     Dates: start: 20050101
  9. CYTOXAN [Concomitant]
     Indication: MULTIPLE MYELOMA
     Dates: start: 20041120
  10. CYTOXAN [Concomitant]
     Indication: MULTIPLE MYELOMA
     Dates: start: 20050101
  11. ETOPOSIDE [Suspect]
     Indication: MULTIPLE MYELOMA
     Dates: start: 20041120
  12. ETOPOSIDE [Suspect]
     Indication: MULTIPLE MYELOMA
     Dates: start: 20050101
  13. VANCOMYCIN [Suspect]
     Indication: DRUG USE FOR UNKNOWN INDICATION
     Dates: start: 20050301
  14. ACYCLOVIR [Suspect]
     Indication: DRUG USE FOR UNKNOWN INDICATION
     Dates: start: 20050301
  15. ZOLPIDEM TARTRATE [Suspect]
     Indication: DRUG USE FOR UNKNOWN INDICATION
     Dates: start: 20050301
  16. FLUCONAZOLE [Suspect]
     Indication: DRUG USE FOR UNKNOWN INDICATION
     Dates: start: 20050301
  17. LEVOFLOXACIN [Suspect]
     Indication: DRUG USE FOR UNKNOWN INDICATION
     Dates: start: 20050301
  18. METRONIDAZOLE [Suspect]
     Indication: DRUG USE FOR UNKNOWN INDICATION
     Dates: start: 20050301
  19. METOPROLOL TARTRATE [Suspect]
     Indication: HYPERTENSION
     Dates: start: 20050301
  20. DEXTROSE [Suspect]
     Indication: DRUG USE FOR UNKNOWN INDICATION
     Dates: start: 20050301
  21. SODIUM PHOSPHATES [Suspect]
     Dates: start: 20050301
  22. DIPHENHYDRAMINE HCL [Suspect]
     Indication: RASH
     Dates: start: 20050301
  23. ENOXAPARIN SODIUM [Suspect]
     Indication: DRUG USE FOR UNKNOWN INDICATION
     Dates: start: 20050301
  24. ACETAMINOPHEN [Suspect]
     Indication: DRUG USE FOR UNKNOWN INDICATION
     Dates: start: 20050301
  25. HYDROCORTISONE [Suspect]
     Indication: RASH
     Dosage: TOPICAL
     Route: 061
     Dates: start: 20050301
  26. MAGNESIUM SULFATE [Suspect]
     Indication: DRUG USE FOR UNKNOWN INDICATION
     Dates: start: 20050301
  27. SODIUM CHLORIDE 0.9% [Suspect]
     Indication: DRUG USE FOR UNKNOWN INDICATION
     Dates: start: 20050301
  28. COMBIVENT [Suspect]
     Indication: DRUG USE FOR UNKNOWN INDICATION
     Dates: start: 20050301
  29. PREDNISONE [Suspect]
     Indication: RASH
     Dates: start: 20050301
  30. MELPHALAN (MELPHALAN) [Suspect]
     Indication: MULTIPLE MYELOMA
     Dosage: 140 MG/M2, ORAL
     Route: 048
     Dates: start: 20050209, end: 20050209
  31. FOLIC ACID [Concomitant]

REACTIONS (8)
  - DEEP VEIN THROMBOSIS [None]
  - HYPOTENSION [None]
  - PYREXIA [None]
  - RASH [None]
  - RASH ERYTHEMATOUS [None]
  - RASH MACULO-PAPULAR [None]
  - SYNCOPE [None]
  - THROMBOCYTOPENIA [None]
